FAERS Safety Report 9416038 (Version 1)
Quarter: 2013Q3

REPORT INFORMATION
  Report Type: Spontaneous
  Country: US (occurrence: US)
  Receive Date: 20130724
  Receipt Date: 20130724
  Transmission Date: 20140515
  Serious: No
  Sender: FDA-Public Use
  Company Number: US-BIOGENIDEC-2013BI067836

PATIENT
  Age: 49 Year
  Sex: Female

DRUGS (10)
  1. TYSABRI [Suspect]
     Indication: CROHN^S DISEASE
     Route: 042
     Dates: start: 201207
  2. DEXILANT [Concomitant]
  3. ZOFRAN [Concomitant]
  4. PHENERGAN [Concomitant]
  5. IBUPROFEN [Concomitant]
  6. ZOLPIDEM [Concomitant]
  7. RELPAX [Concomitant]
  8. LEVOTHYROXINE [Concomitant]
  9. METHADONE [Concomitant]
  10. OMEPRAZOLE [Concomitant]

REACTIONS (2)
  - Depression [Not Recovered/Not Resolved]
  - Multiple sclerosis relapse [Unknown]
